FAERS Safety Report 6785680-8 (Version None)
Quarter: 2010Q2

REPORT INFORMATION
  Report Type: 
  Country: None (occurrence: None)
  Receive Date: 20100621
  Receipt Date: 20100621
  Transmission Date: 20101027
  Serious: Yes (Hospitalization)
  Sender: FDA-Public Use
  Company Number: None

PATIENT
  Age: 77 Year
  Sex: Female
  Weight: 103 kg

DRUGS (7)
  1. COUMADIN [Suspect]
     Indication: DEEP VEIN THROMBOSIS
     Dosage: 3 MG DAILY PO - CHRONIC
     Route: 048
  2. LEVAQUIN [Suspect]
     Indication: INFUSION
     Dosage: ? ? ? RECENT
  3. THYROID TAB [Concomitant]
  4. VOLTAREN [Concomitant]
  5. LOVASTATIN [Concomitant]
  6. ALTACE [Concomitant]
  7. TRIAMTERENE AND HYDROCHLOROTHIAZIDE [Concomitant]

REACTIONS (6)
  - ANAEMIA OF CHRONIC DISEASE [None]
  - CELLULITIS [None]
  - DRUG INTERACTION [None]
  - HYPONATRAEMIA [None]
  - INTERNATIONAL NORMALISED RATIO INCREASED [None]
  - SECRETION DISCHARGE [None]
